FAERS Safety Report 7637126-5 (Version None)
Quarter: 2011Q3

REPORT INFORMATION
  Report Type: 
  Country: None (occurrence: None)
  Receive Date: 20110722
  Receipt Date: 20110722
  Transmission Date: 20111222
  Serious: No
  Sender: FDA-Public Use
  Company Number: None

PATIENT

DRUGS (1)
  1. LEVOTHROID [Suspect]
     Indication: HYPOTHYROIDISM
     Dosage: 0.025MG 1 A DAY OFF AND ON OVER A PERIOD OF YEARS

REACTIONS (4)
  - VERTIGO [None]
  - RESTLESS LEGS SYNDROME [None]
  - DRY MOUTH [None]
  - PRODUCT SUBSTITUTION ISSUE [None]
